FAERS Safety Report 24806886 (Version 1)
Quarter: 2025Q1

REPORT INFORMATION
  Report Type: Spontaneous
  Country: US (occurrence: US)
  Receive Date: 20250104
  Receipt Date: 20250104
  Transmission Date: 20250409
  Serious: Yes (Other)
  Sender: ACCORD
  Company Number: US-MLMSERVICE-20241219-PI314809-00165-1

PATIENT
  Age: 77 Year
  Sex: Male

DRUGS (2)
  1. GEMCITABINE [Suspect]
     Active Substance: GEMCITABINE
     Indication: Ductal adenocarcinoma of pancreas
     Dates: start: 201808
  2. PACLITAXEL [Suspect]
     Active Substance: PACLITAXEL
     Indication: Ductal adenocarcinoma of pancreas
     Dates: start: 201808

REACTIONS (3)
  - Leukopenia [Unknown]
  - Cellulitis [Unknown]
  - Anaemia [Unknown]

NARRATIVE: CASE EVENT DATE: 20180801
